FAERS Safety Report 10785792 (Version 1)
Quarter: 2015Q1

REPORT INFORMATION
  Report Type: Spontaneous
  Country: FR (occurrence: FR)
  Receive Date: 20150211
  Receipt Date: 20150211
  Transmission Date: 20150721
  Serious: Yes (Life-Threatening, Hospitalization)
  Sender: FDA-Public Use
  Company Number: FR-MYLANLABS-2015M1003653

PATIENT

DRUGS (7)
  1. VORICONAZOLE. [Interacting]
     Active Substance: VORICONAZOLE
     Dosage: 2 MG, BID
     Route: 048
  2. EVEROLIMUS [Interacting]
     Active Substance: EVEROLIMUS
     Dosage: 1 MG, BID
     Route: 065
  3. VORICONAZOLE. [Suspect]
     Active Substance: VORICONAZOLE
     Dosage: FIRST DAY, FOLLOWED BY 200MG BID
     Route: 048
  4. EVEROLIMUS [Interacting]
     Active Substance: EVEROLIMUS
     Indication: IMMUNOSUPPRESSANT DRUG THERAPY
     Dosage: THEN DECREASED TO 2.5MG/DAY
     Route: 065
  5. PREDNISONE. [Concomitant]
     Active Substance: PREDNISONE
     Dosage: 20 MG, QD
     Route: 065
  6. EVEROLIMUS [Interacting]
     Active Substance: EVEROLIMUS
     Dosage: 2.5MG (1.5MG IN MORNING AND 1MG IN EVENING, THEN 1MG BID THE DAY AFTER)
     Route: 065
  7. MYCOPHENOLATE MOFETIL. [Concomitant]
     Active Substance: MYCOPHENOLATE MOFETIL
     Dosage: 1 G, BID
     Route: 065

REACTIONS (3)
  - Drug interaction [Unknown]
  - Bronchopulmonary aspergillosis [Unknown]
  - Condition aggravated [Unknown]
